FAERS Safety Report 12310175 (Version 1)
Quarter: 2016Q2

REPORT INFORMATION
  Report Type: Spontaneous
  Country: US (occurrence: None)
  Receive Date: 20160426
  Receipt Date: 20160426
  Transmission Date: 20160815
  Serious: No
  Sender: FDA-Public Use
  Company Number: None

PATIENT
  Age: 53 Year
  Sex: Female
  Weight: 36.29 kg

DRUGS (12)
  1. METFORMIN [Concomitant]
     Active Substance: METFORMIN HYDROCHLORIDE
  2. TYLENOL [Concomitant]
     Active Substance: ACETAMINOPHEN
  3. LANTUS [Concomitant]
     Active Substance: INSULIN GLARGINE
  4. NEUROTIN [Concomitant]
     Active Substance: GABAPENTIN
  5. LYRICA [Concomitant]
     Active Substance: PREGABALIN
  6. ASPIRIN. [Concomitant]
     Active Substance: ASPIRIN
  7. VITAMIN D [Concomitant]
     Active Substance: CHOLECALCIFEROL
  8. LOVASTATIN. [Concomitant]
     Active Substance: LOVASTATIN
  9. DEXILANT [Concomitant]
     Active Substance: DEXLANSOPRAZOLE
  10. VICTOZA [Suspect]
     Active Substance: LIRAGLUTIDE
     Indication: TYPE 2 DIABETES MELLITUS
     Dosage: 14 INJECTION(S)  GIVEN INTO/UNDER THE SKIN
     Route: 030
     Dates: start: 20160308, end: 20160320
  11. NOVASC [Concomitant]
  12. LASIX [Concomitant]
     Active Substance: FUROSEMIDE

REACTIONS (6)
  - Nausea [None]
  - Diarrhoea [None]
  - Headache [None]
  - Back pain [None]
  - Vomiting [None]
  - Asthenia [None]

NARRATIVE: CASE EVENT DATE: 20160323
